FAERS Safety Report 6988864-9 (Version None)
Quarter: 2010Q3

REPORT INFORMATION
  Report Type: 
  Country: None (occurrence: None)
  Receive Date: 20100830
  Receipt Date: 20100720
  Transmission Date: 20110219
  Serious: No
  Sender: FDA-Public Use
  Company Number: 2010091167

PATIENT
  Sex: Female

DRUGS (1)
  1. TOVIAZ [Suspect]

REACTIONS (2)
  - MALAISE [None]
  - POLLAKIURIA [None]
